APPROVED DRUG PRODUCT: CHLORZOXAZONE
Active Ingredient: CHLORZOXAZONE
Strength: 375MG
Dosage Form/Route: TABLET;ORAL
Application: A040861 | Product #001 | TE Code: AB
Applicant: ANDA REPOSITORY LLC
Approved: Jun 1, 2010 | RLD: No | RS: Yes | Type: RX